FAERS Safety Report 25598285 (Version 2)
Quarter: 2025Q3

REPORT INFORMATION
  Report Type: Report from Study
  Country: US (occurrence: US)
  Receive Date: 20250723
  Receipt Date: 20250725
  Transmission Date: 20251020
  Serious: Yes (Death, Life-Threatening, Hospitalization)
  Sender: PFIZER
  Company Number: US-PFIZER INC-PV202500087992

PATIENT
  Age: 42 Year
  Sex: Female
  Weight: 161.84 kg

DRUGS (22)
  1. VINCRISTINE SULFATE [Suspect]
     Active Substance: VINCRISTINE SULFATE
     Indication: Non-Hodgkin^s lymphoma
     Dosage: UNK, Q3W
     Route: 042
     Dates: start: 20210909
  2. RITUXIMAB [Suspect]
     Active Substance: RITUXIMAB
     Indication: Non-Hodgkin^s lymphoma
     Dosage: UNK, Q3W
     Route: 042
     Dates: start: 20210909
  3. DOXORUBICIN HYDROCHLORIDE [Suspect]
     Active Substance: DOXORUBICIN HYDROCHLORIDE
     Indication: Non-Hodgkin^s lymphoma
     Dosage: UNK, Q3W
     Route: 042
     Dates: start: 20210909
  4. INVESTIGATIONAL PRODUCT [Suspect]
     Active Substance: INVESTIGATIONAL PRODUCT
     Indication: Non-Hodgkin^s lymphoma
     Dates: start: 20210909
  5. INVESTIGATIONAL PRODUCT [Suspect]
     Active Substance: INVESTIGATIONAL PRODUCT
     Indication: Non-Hodgkin^s lymphoma
     Dosage: LENALIDOMIDE VS PLACEBO
     Route: 048
     Dates: start: 20210909
  6. CYCLOPHOSPHAMIDE [Suspect]
     Active Substance: CYCLOPHOSPHAMIDE
     Indication: Non-Hodgkin^s lymphoma
     Dosage: UNK, Q3W
     Route: 042
     Dates: start: 20210909
  7. PREDNISOLONE [Suspect]
     Active Substance: PREDNISOLONE
     Indication: Non-Hodgkin^s lymphoma
     Dosage: UNK, Q3W
     Route: 042
     Dates: start: 20210909
  8. OMEPRAZOLE [Concomitant]
     Active Substance: OMEPRAZOLE
     Indication: Gastrooesophageal reflux disease
     Dosage: 20 MG, QD
     Route: 048
     Dates: start: 20210831
  9. OXYCODONE [Concomitant]
     Active Substance: OXYCODONE
     Indication: Back pain
     Route: 048
     Dates: start: 20210901
  10. OXYCODONE [Concomitant]
     Active Substance: OXYCODONE
     Indication: Abdominal pain
  11. ASPIRIN [Concomitant]
     Active Substance: ASPIRIN
     Indication: Thrombosis prophylaxis
     Dosage: 325 MG, QD
     Route: 048
     Dates: start: 20210909
  12. ALLOPURINOL [Concomitant]
     Active Substance: ALLOPURINOL
     Indication: Prophylaxis
     Dosage: 300 MG, QD
     Route: 048
     Dates: start: 20210908
  13. COMPAZINE [Concomitant]
     Active Substance: PROCHLORPERAZINE MALEATE
     Indication: Nausea
     Route: 048
     Dates: start: 20210908
  14. COMPAZINE [Concomitant]
     Active Substance: PROCHLORPERAZINE MALEATE
     Indication: Vomiting
  15. PURE BAKING SODA [Concomitant]
     Active Substance: SODIUM BICARBONATE
     Indication: Candida infection
     Route: 048
     Dates: start: 20210914
  16. ZOFRAN [Concomitant]
     Active Substance: ONDANSETRON HYDROCHLORIDE
     Indication: Nausea
     Dosage: 8 MG, Q8H
     Route: 048
     Dates: start: 20210914
  17. ZOFRAN [Concomitant]
     Active Substance: ONDANSETRON HYDROCHLORIDE
     Indication: Vomiting
  18. LIDOCAINE AND PRILOCAINE [Concomitant]
     Active Substance: LIDOCAINE\PRILOCAINE
     Indication: Prophylaxis
     Dosage: 2.5 %, QW
     Route: 061
     Dates: start: 20210916
  19. OLANZAPINE [Concomitant]
     Active Substance: OLANZAPINE
     Indication: Nausea
     Dosage: 5 MG, EVERY NIGHT AT BEDTIME (QHS)
     Route: 048
     Dates: start: 20210922
  20. OLANZAPINE [Concomitant]
     Active Substance: OLANZAPINE
     Indication: Vomiting
  21. PFIZER-BIONTECH COVID-19 VACCINE [Concomitant]
     Active Substance: TOZINAMERAN
     Indication: COVID-19 prophylaxis
     Route: 058
     Dates: start: 20210904, end: 20210904
  22. DIPHENHYDRAMINE HYDROCHLORIDE\LIDOCAINE HYDROCHLORIDE\NYSTATIN [Concomitant]
     Active Substance: DIPHENHYDRAMINE HYDROCHLORIDE\LIDOCAINE HYDROCHLORIDE\NYSTATIN
     Route: 048
     Dates: start: 20210914

REACTIONS (1)
  - COVID-19 pneumonia [Fatal]

NARRATIVE: CASE EVENT DATE: 20210923
